FAERS Safety Report 4394449-3 (Version None)
Quarter: 2004Q3

REPORT INFORMATION
  Report Type: 
  Country: None (occurrence: None)
  Receive Date: 20040709
  Receipt Date: 20040709
  Transmission Date: 20050211
  Serious: Yes (Other)
  Sender: FDA-Public Use
  Company Number: None

PATIENT
  Sex: Male
  Weight: 66 kg

DRUGS (7)
  1. OXYCODONE ER BY TEVA [Suspect]
     Indication: BACK PAIN
     Dosage: 80 MG PO Q6 HOURS
     Route: 048
     Dates: start: 20040630
  2. SPIRONOLACTONE [Concomitant]
  3. MDI'S [Concomitant]
  4. NEURONTIN [Concomitant]
  5. WELLBUTIRN SR [Concomitant]
  6. ELAVIL [Concomitant]
  7. CYTOTEC [Concomitant]

REACTIONS (2)
  - DRUG EFFECT DECREASED [None]
  - PHARMACEUTICAL PRODUCT COMPLAINT [None]
